FAERS Safety Report 6072656-1 (Version None)
Quarter: 2009Q1

REPORT INFORMATION
  Report Type: 
  Country: None (occurrence: None)
  Receive Date: 20090210
  Receipt Date: 20090129
  Transmission Date: 20090719
  Serious: Yes (Other)
  Sender: FDA-Public Use
  Company Number: JP-PFIZER INC-2009163927

PATIENT

DRUGS (10)
  1. ALDACTONE [Suspect]
     Dosage: UNK
     Route: 048
     Dates: start: 20081001
  2. PLETAL [Concomitant]
     Route: 048
  3. JUVELA NICOTINATE [Concomitant]
     Route: 048
  4. HOKUNALIN [Concomitant]
     Route: 062
  5. FRANDOL [Concomitant]
     Route: 062
  6. MUCOSOLVAN [Concomitant]
     Route: 048
  7. LASIX [Concomitant]
  8. MEVALOTIN [Concomitant]
     Route: 048
  9. KETAS [Concomitant]
     Route: 048
  10. BASEN [Concomitant]
     Route: 048

REACTIONS (2)
  - GENITAL DISCHARGE [None]
  - POSTMENOPAUSAL HAEMORRHAGE [None]
